FAERS Safety Report 7326241-1 (Version None)
Quarter: 2011Q1

REPORT INFORMATION
  Report Type: 
  Country: None (occurrence: None)
  Receive Date: 20110302
  Receipt Date: 20110224
  Transmission Date: 20110831
  Serious: Yes (Hospitalization)
  Sender: FDA-Public Use
  Company Number: A0915291A

PATIENT
  Age: 74 Year
  Sex: Female

DRUGS (5)
  1. QVAR 40 [Suspect]
     Indication: ASTHMA
     Route: 055
  2. ASPIRIN [Concomitant]
  3. VYTORIN [Concomitant]
  4. PROTONIX [Concomitant]
  5. ADVAIR DISKUS 100/50 [Suspect]
     Indication: ASTHMA
     Dosage: 1PUFF TWICE PER DAY
     Route: 055
     Dates: start: 20090101

REACTIONS (4)
  - SPUTUM RETENTION [None]
  - DRUG INEFFECTIVE [None]
  - ILL-DEFINED DISORDER [None]
  - PNEUMONIA [None]
